FAERS Safety Report 17143067 (Version 1)
Quarter: 2019Q4

REPORT INFORMATION
  Report Type: Report from Study
  Country: US (occurrence: US)
  Receive Date: 20191211
  Receipt Date: 20191211
  Transmission Date: 20200122
  Serious: Yes (Hospitalization)
  Sender: FDA-Public Use
  Company Number: NVSC2019US018268

PATIENT
  Age: 29 Year
  Sex: Male
  Weight: 81.5 kg

DRUGS (102)
  1. DEXAMETHASONE. [Concomitant]
     Active Substance: DEXAMETHASONE
     Indication: PROPHYLAXIS OF NAUSEA AND VOMITING
     Dosage: 10 MG, QD
     Route: 042
     Dates: start: 20190705, end: 20190705
  2. ONDANSETRAN [Concomitant]
     Active Substance: ONDANSETRON HYDROCHLORIDE
     Indication: PROPHYLAXIS OF NAUSEA AND VOMITING
     Dosage: 4 MG, Q4H
     Route: 065
     Dates: start: 20171027, end: 20171031
  3. TOBRAMYCIN. [Concomitant]
     Active Substance: TOBRAMYCIN
     Indication: INFECTIVE PULMONARY EXACERBATION OF CYSTIC FIBROSIS
     Dosage: 730 MG, Q24H
     Route: 042
     Dates: start: 20170221, end: 20170302
  4. TOBRAMYCIN. [Concomitant]
     Active Substance: TOBRAMYCIN
     Dosage: 80 MG/2ML, BID
     Route: 048
     Dates: start: 20190708, end: 20190805
  5. LOVENOX [Concomitant]
     Active Substance: ENOXAPARIN SODIUM
     Indication: THROMBOSIS PROPHYLAXIS
     Dosage: 40 MG, QD
     Route: 058
     Dates: start: 20190325, end: 20190411
  6. TYLENOL [Concomitant]
     Active Substance: ACETAMINOPHEN
     Indication: PAIN
  7. FLAGYL [Concomitant]
     Active Substance: METRONIDAZOLE\METRONIDAZOLE HYDROCHLORIDE
     Indication: CLOSTRIDIUM DIFFICILE INFECTION
     Dosage: 500 MG, TID
     Route: 048
     Dates: start: 20181108, end: 20181115
  8. LINEZOLID. [Concomitant]
     Active Substance: LINEZOLID
     Indication: NASOPHARYNGITIS
     Dosage: 1200 MG, BID
     Route: 048
     Dates: start: 20171030, end: 20171031
  9. ZITHROMAX [Concomitant]
     Active Substance: AZITHROMYCIN DIHYDRATE
     Indication: CYSTIC FIBROSIS LUNG
     Dosage: 250 MG
     Route: 048
     Dates: start: 20181003
  10. ALLEGRA [Concomitant]
     Active Substance: FEXOFENADINE HYDROCHLORIDE
     Indication: SEASONAL ALLERGY
     Dosage: 180 MG, QD
     Route: 048
     Dates: start: 20181003
  11. MEROPENEM. [Concomitant]
     Active Substance: MEROPENEM
     Dosage: 2 G, 98 HRS
     Route: 042
     Dates: start: 20180830, end: 20180913
  12. XARELTO [Concomitant]
     Active Substance: RIVAROXABAN
     Dosage: 10 MG, QD
     Route: 048
     Dates: start: 20181230, end: 20190110
  13. ROCURONIUM [Concomitant]
     Active Substance: ROCURONIUM BROMIDE
     Indication: SINUS OPERATION
     Dosage: 50 MG, QD
     Route: 042
     Dates: start: 20190705, end: 20190705
  14. ONDANSETRAN [Concomitant]
     Active Substance: ONDANSETRON HYDROCHLORIDE
     Indication: NAUSEA
     Dosage: 4 MG, QD
     Route: 065
     Dates: start: 20190705, end: 20190705
  15. GLYCOPYRROLATE. [Concomitant]
     Active Substance: GLYCOPYRROLATE
     Indication: SINUS OPERATION
     Dosage: 0.4 MG, QD
     Route: 042
     Dates: start: 20190705, end: 20190705
  16. COLY-MYCIN [Concomitant]
     Indication: CYSTIC FIBROSIS LUNG
     Dosage: 75 MG, 98 HRS
     Route: 042
     Dates: start: 20190328, end: 20190408
  17. CEFDINIR. [Concomitant]
     Active Substance: CEFDINIR
     Indication: COUGH
     Dosage: 300 MG, BID
     Route: 048
     Dates: start: 20181217, end: 20181228
  18. CEFDINIR. [Concomitant]
     Active Substance: CEFDINIR
     Indication: INFECTIVE PULMONARY EXACERBATION OF CYSTIC FIBROSIS
     Dosage: 300 MG, BID
     Route: 048
     Dates: start: 20190319, end: 20190325
  19. TYLENOL [Concomitant]
     Active Substance: ACETAMINOPHEN
     Indication: INFLUENZA
     Dosage: 650 MG, PRN (94 HOURS)
     Route: 048
     Dates: start: 20190325, end: 20190328
  20. GLUCAGEN [Concomitant]
     Active Substance: GLUCAGON HYDROCHLORIDE
     Indication: BLOOD GLUCOSE ABNORMAL
     Dosage: 1 MG, PRN
     Route: 030
     Dates: start: 20190325, end: 20190408
  21. DEXTROSE. [Concomitant]
     Active Substance: DEXTROSE
     Indication: BLOOD GLUCOSE ABNORMAL
     Dosage: 50 ML, PRN
     Route: 042
     Dates: start: 20190325, end: 20190328
  22. CEFEPIME [Concomitant]
     Active Substance: CEFEPIME HYDROCHLORIDE
     Dosage: 2000 MG, TID
     Route: 042
     Dates: start: 20171029, end: 20171031
  23. BACTRIM DS [Concomitant]
     Active Substance: SULFAMETHOXAZOLE\TRIMETHOPRIM
     Indication: SINUSITIS
     Dosage: 800 MG, BID
     Route: 048
     Dates: start: 20161215, end: 20161222
  24. LINEZOLID. [Concomitant]
     Active Substance: LINEZOLID
     Indication: NASAL CONGESTION
  25. INFLUENZA VACCINE [Concomitant]
     Active Substance: INFLUENZA VIRUS VACCINE
     Indication: PROPHYLAXIS
     Dosage: 0.5 ML, QD
     Route: 030
     Dates: start: 20171031, end: 20171031
  26. PRILOSEC [Concomitant]
     Active Substance: OMEPRAZOLE MAGNESIUM
     Indication: GASTROOESOPHAGEAL REFLUX DISEASE
     Dosage: 40 MG, BID (BEFORE MEALS)
     Route: 048
     Dates: start: 20181003
  27. MEROPENEM. [Concomitant]
     Active Substance: MEROPENEM
     Indication: INFECTIVE PULMONARY EXACERBATION OF CYSTIC FIBROSIS
     Dosage: 2 G, Q8H
     Route: 042
     Dates: start: 20170728, end: 20170810
  28. TAMIFLU [Concomitant]
     Active Substance: OSELTAMIVIR PHOSPHATE
     Indication: INFLUENZA
     Dosage: 75 MG, BID
     Route: 048
     Dates: start: 20190401, end: 20190405
  29. BACTRIM DS [Concomitant]
     Active Substance: SULFAMETHOXAZOLE\TRIMETHOPRIM
     Indication: NASOPHARYNGITIS
     Dosage: 800 MG, BID
     Route: 048
     Dates: start: 20161020, end: 20161103
  30. BACTRIM DS [Concomitant]
     Active Substance: SULFAMETHOXAZOLE\TRIMETHOPRIM
     Indication: INFECTIVE PULMONARY EXACERBATION OF CYSTIC FIBROSIS
     Dosage: 1400 MG, BID
     Route: 048
     Dates: start: 20170627, end: 20170711
  31. BACTRIM DS [Concomitant]
     Active Substance: SULFAMETHOXAZOLE\TRIMETHOPRIM
     Dosage: 800 MG, BID
     Route: 048
     Dates: start: 20180430, end: 20180510
  32. URSODIOL. [Concomitant]
     Active Substance: URSODIOL
     Indication: CHOLELITHIASIS
     Dosage: 300 MG, QD
     Route: 048
     Dates: start: 20060817, end: 20160623
  33. CIPRO [Concomitant]
     Active Substance: CIPROFLOXACIN HYDROCHLORIDE
     Indication: INFECTIVE PULMONARY EXACERBATION OF CYSTIC FIBROSIS
     Dosage: 750 MG, BID
     Route: 065
     Dates: start: 20160811, end: 20160814
  34. ORKAMBI [Concomitant]
     Active Substance: IVACAFTOR\LUMACAFTOR
     Indication: CYSTIC FIBROSIS LUNG
     Dosage: 2 DF, BID (WITH HIGH FAT MEAL)
     Route: 065
     Dates: start: 20150811, end: 20180405
  35. LACTATED RINGERS SOLUTION [Concomitant]
     Active Substance: CALCIUM CHLORIDE\POTASSIUM CHLORIDE\SODIUM CHLORIDE\SODIUM LACTATE
     Indication: FLUID REPLACEMENT
     Dosage: 900 ML, QD
     Route: 042
     Dates: start: 20190705, end: 20190705
  36. MEROPENEM. [Concomitant]
     Active Substance: MEROPENEM
     Dosage: 2000 MG, Q8H
     Route: 042
     Dates: start: 20181231, end: 20190110
  37. MEROPENEM. [Concomitant]
     Active Substance: MEROPENEM
     Dosage: 2000 MG, Q8H
     Route: 042
     Dates: start: 20190325, end: 20190408
  38. XARELTO [Concomitant]
     Active Substance: RIVAROXABAN
     Dosage: 10 MG, QD
     Route: 048
     Dates: start: 20190809, end: 20190822
  39. TOBRAMYCIN. [Concomitant]
     Active Substance: TOBRAMYCIN
     Dosage: 730 MG FOR 8 DAYS
     Route: 042
     Dates: start: 20171029, end: 20171030
  40. CEFDINIR. [Concomitant]
     Active Substance: CEFDINIR
     Dosage: 300 MG, BID
     Route: 048
     Dates: start: 20190708, end: 20190727
  41. FENTANYL. [Concomitant]
     Active Substance: FENTANYL
     Indication: PROCEDURAL PAIN
     Dosage: 200 MG, QD
     Route: 042
     Dates: start: 20190705, end: 20190705
  42. DOXYCYCLINE. [Concomitant]
     Active Substance: DOXYCYCLINE
     Indication: SPUTUM INCREASED
     Dosage: 100 MG, BID
     Route: 048
     Dates: start: 20170421, end: 20170501
  43. DOXYCYCLINE. [Concomitant]
     Active Substance: DOXYCYCLINE
     Indication: SINUSITIS
     Dosage: 100 MG, BID
     Route: 048
     Dates: start: 20181127, end: 20181213
  44. DOXYCYCLINE. [Concomitant]
     Active Substance: DOXYCYCLINE
     Indication: COUGH
     Dosage: 10 MG, QD
     Route: 048
     Dates: start: 20190121, end: 20190123
  45. NACL [Concomitant]
     Active Substance: SODIUM CHLORIDE
     Indication: INFECTIVE PULMONARY EXACERBATION OF CYSTIC FIBROSIS
     Dosage: 100 ML/HR
     Route: 042
     Dates: start: 20171027, end: 20171028
  46. ENOXAPARIN [Concomitant]
     Active Substance: ENOXAPARIN
     Indication: INFECTIVE PULMONARY EXACERBATION OF CYSTIC FIBROSIS
     Dosage: 40 MG, QD
     Route: 058
     Dates: start: 20181228, end: 20181231
  47. VANCOMYCIN [Concomitant]
     Active Substance: VANCOMYCIN
     Dosage: 125 MG, QID
     Route: 048
     Dates: start: 20181115, end: 20181125
  48. BACTRIM DS [Concomitant]
     Active Substance: SULFAMETHOXAZOLE\TRIMETHOPRIM
     Indication: COUGH
     Dosage: 800 MG, BID
     Route: 048
     Dates: start: 20170215, end: 20170301
  49. LINEZOLID. [Concomitant]
     Active Substance: LINEZOLID
     Indication: SINUSITIS
     Dosage: 600 MG, BID
     Route: 048
     Dates: start: 20180723, end: 20180913
  50. MELATONIN [Concomitant]
     Active Substance: MELATONIN
     Indication: INSOMNIA
     Dosage: 3 MG, QHS
     Route: 048
     Dates: start: 20171027, end: 20171031
  51. INFLUENZA VACCINE [Concomitant]
     Active Substance: INFLUENZA VIRUS VACCINE
     Indication: INFLUENZA
  52. TOBRAMYCIN. [Suspect]
     Active Substance: TOBRAMYCIN
     Indication: PNEUMONIA
  53. HEPARIN [Concomitant]
     Active Substance: HEPARIN SODIUM
     Indication: ANTICOAGULANT THERAPY
     Dosage: 100 U/ML, PRN
     Route: 042
     Dates: start: 20190809, end: 20190822
  54. XARELTO [Concomitant]
     Active Substance: RIVAROXABAN
     Indication: ANTICOAGULANT THERAPY
     Dosage: 10 MG FOR 8 DAYS
     Route: 048
     Dates: start: 20170214, end: 20170302
  55. NEOSTIGMINE. [Concomitant]
     Active Substance: NEOSTIGMINE METHYLSULFATE
     Indication: SURGERY
     Dosage: 5 MG, QD
     Route: 042
     Dates: start: 20190705, end: 20190705
  56. COLY-MYCIN [Concomitant]
     Dosage: 80 MG, Q8H
     Route: 042
     Dates: start: 20190328, end: 20190503
  57. TOBRAMYCIN. [Concomitant]
     Active Substance: TOBRAMYCIN
     Dosage: 730 MG FOR 8 DAYS
     Route: 042
     Dates: start: 20170728, end: 20170810
  58. LOVENOX [Concomitant]
     Active Substance: ENOXAPARIN SODIUM
     Indication: INFECTIVE PULMONARY EXACERBATION OF CYSTIC FIBROSIS
     Dosage: 40 MG, QD
     Route: 058
     Dates: start: 20171028, end: 20171031
  59. DOXYCYCLINE. [Concomitant]
     Active Substance: DOXYCYCLINE
     Indication: UPPER RESPIRATORY TRACT INFECTION
  60. NACL [Concomitant]
     Active Substance: SODIUM CHLORIDE
     Dosage: 10 ML, QW
     Route: 042
     Dates: start: 20181228, end: 20190110
  61. CELEBREX [Concomitant]
     Active Substance: CELECOXIB
     Indication: ARTHRALGIA
     Dosage: 200 MG, QD
     Route: 048
     Dates: start: 20181108, end: 20181125
  62. VANCOMYCIN [Concomitant]
     Active Substance: VANCOMYCIN
     Indication: INFECTIVE PULMONARY EXACERBATION OF CYSTIC FIBROSIS
     Dosage: 1750 MG, TID
     Route: 042
     Dates: start: 20171029, end: 20171030
  63. CEFEPIME [Concomitant]
     Active Substance: CEFEPIME HYDROCHLORIDE
     Indication: INFECTIVE PULMONARY EXACERBATION OF CYSTIC FIBROSIS
     Dosage: 2000 MG, QD
     Route: 042
     Dates: start: 20171027, end: 20171027
  64. BACTRIM DS [Concomitant]
     Active Substance: SULFAMETHOXAZOLE\TRIMETHOPRIM
     Dosage: 1400 MG, BID
     Route: 048
     Dates: start: 20171027, end: 20171027
  65. TORADOL [Concomitant]
     Active Substance: KETOROLAC TROMETHAMINE
     Indication: CHEST PAIN
     Dosage: 40 MG, QD
     Route: 042
     Dates: start: 20171027, end: 20171027
  66. URSODIOL. [Concomitant]
     Active Substance: URSODIOL
     Indication: PROPHYLAXIS
  67. TOBRAMYCIN. [Suspect]
     Active Substance: TOBRAMYCIN
     Indication: ABDOMINAL PAIN
  68. MEROPENEM. [Concomitant]
     Active Substance: MEROPENEM
     Indication: CYSTIC FIBROSIS LUNG
     Dosage: 2 G, Q8H
     Route: 042
     Dates: start: 20170214, end: 20170302
  69. TOBRAMYCIN. [Concomitant]
     Active Substance: TOBRAMYCIN
     Dosage: 800 MG, Q24H
     Route: 042
     Dates: start: 20170217, end: 20170221
  70. TYLENOL [Concomitant]
     Active Substance: ACETAMINOPHEN
     Indication: PYREXIA
     Dosage: 450 MG, QD
     Route: 048
     Dates: start: 20190401, end: 20190401
  71. SEPTRA DS [Concomitant]
     Active Substance: SULFAMETHOXAZOLE\TRIMETHOPRIM
     Indication: COUGH
     Dosage: 140 MG, BID
     Route: 048
     Dates: start: 20161020, end: 20161108
  72. SEPTRA DS [Concomitant]
     Active Substance: SULFAMETHOXAZOLE\TRIMETHOPRIM
     Indication: SPUTUM INCREASED
     Dosage: 140 MG, BID
     Route: 048
     Dates: start: 20170215, end: 20170301
  73. SEPTRA DS [Concomitant]
     Active Substance: SULFAMETHOXAZOLE\TRIMETHOPRIM
     Dosage: 320 MG, BID
     Route: 048
     Dates: start: 20170627, end: 20170711
  74. SEPTRA DS [Concomitant]
     Active Substance: SULFAMETHOXAZOLE\TRIMETHOPRIM
     Dosage: 140 MG, BID
     Route: 048
     Dates: start: 20180430, end: 20180510
  75. CEFEPIME [Concomitant]
     Active Substance: CEFEPIME HYDROCHLORIDE
     Dosage: 2000 MG, TID
     Route: 042
     Dates: start: 20171031, end: 20171110
  76. VITAMIN D3 [Concomitant]
     Active Substance: CHOLECALCIFEROL
     Indication: VITAMIN D DEFICIENCY
     Dosage: 4000 IU, QD
     Route: 065
     Dates: start: 20170627
  77. AVELOX [Concomitant]
     Active Substance: MOXIFLOXACIN HYDROCHLORIDE
     Dosage: 400 MG, QD
     Route: 065
     Dates: start: 20161004, end: 20161017
  78. ALLEGRA [Concomitant]
     Active Substance: FEXOFENADINE HYDROCHLORIDE
     Dosage: 180 MG, QD
     Route: 048
     Dates: start: 20190515
  79. XARELTO [Concomitant]
     Active Substance: RIVAROXABAN
     Dosage: 10 MG, QD
     Route: 048
     Dates: start: 20171031, end: 20171110
  80. TOBRAMYCIN. [Concomitant]
     Active Substance: TOBRAMYCIN
     Dosage: 740 MG FOR 8 DAYS
     Route: 042
     Dates: start: 20171031, end: 20171108
  81. DOXYCYCLINE. [Concomitant]
     Active Substance: DOXYCYCLINE
     Indication: CHEST PAIN
     Dosage: 100 MG, BID
     Route: 048
     Dates: start: 20180726, end: 20180809
  82. VANCOMYCIN [Concomitant]
     Active Substance: VANCOMYCIN
     Indication: CLOSTRIDIUM DIFFICILE INFECTION
     Dosage: 2000 MG, QD
     Route: 042
     Dates: start: 20171028, end: 20171028
  83. BACTRIM DS [Concomitant]
     Active Substance: SULFAMETHOXAZOLE\TRIMETHOPRIM
     Dosage: 800-160 MG
     Route: 048
     Dates: start: 20180720, end: 20180723
  84. AMINOPHYLLINE. [Concomitant]
     Active Substance: AMINOPHYLLINE
     Indication: DYSPNOEA
     Dosage: 125 MG, QD
     Route: 042
     Dates: start: 20171031, end: 20171031
  85. ACETAMINOPHEN W/HYDROCODONE [Concomitant]
     Active Substance: ACETAMINOPHEN\HYDROCODONE
     Indication: ARTHRALGIA
  86. AVELOX [Concomitant]
     Active Substance: MOXIFLOXACIN HYDROCHLORIDE
     Indication: INFECTIVE PULMONARY EXACERBATION OF CYSTIC FIBROSIS
     Dosage: 400 MG
     Route: 065
     Dates: start: 20160814, end: 20160824
  87. TOBRAMYCIN. [Suspect]
     Active Substance: TOBRAMYCIN
     Indication: INFECTIVE PULMONARY EXACERBATION OF CYSTIC FIBROSIS
     Dosage: 112 UG, BID
     Route: 055
  88. MEROPENEM. [Concomitant]
     Active Substance: MEROPENEM
     Dosage: 2000 MG, QID
     Route: 042
     Dates: start: 20181228
  89. MEROPENEM. [Concomitant]
     Active Substance: MEROPENEM
     Dosage: 2000 MG, Q8H
     Route: 042
     Dates: start: 20190809, end: 20190826
  90. XARELTO [Concomitant]
     Active Substance: RIVAROXABAN
     Indication: THROMBOSIS PROPHYLAXIS
     Dosage: 10 MG FOR 8 DAYS
     Route: 048
     Dates: start: 20170727, end: 20170804
  91. XARELTO [Concomitant]
     Active Substance: RIVAROXABAN
     Dosage: 10 MG, QD
     Route: 048
     Dates: start: 20180514, end: 20180524
  92. XARELTO [Concomitant]
     Active Substance: RIVAROXABAN
     Dosage: 10 MG, QD
     Route: 048
     Dates: start: 20190529, end: 20190602
  93. PROPOFOL. [Concomitant]
     Active Substance: PROPOFOL
     Indication: SINUS OPERATION
     Dosage: 260 MG, QD
     Route: 042
     Dates: start: 20190705, end: 20190705
  94. LIDOCAINE. [Concomitant]
     Active Substance: LIDOCAINE
     Indication: SINUS OPERATION
     Dosage: 100 MG, QD
     Route: 042
     Dates: start: 20190705, end: 20190705
  95. SEPTRA DS [Concomitant]
     Active Substance: SULFAMETHOXAZOLE\TRIMETHOPRIM
     Indication: INFECTIVE PULMONARY EXACERBATION OF CYSTIC FIBROSIS
     Dosage: 140 MG, BID
     Route: 048
     Dates: start: 20161215, end: 20161222
  96. CEFEPIME [Concomitant]
     Active Substance: CEFEPIME HYDROCHLORIDE
     Dosage: 2 G, Q8H
     Route: 042
     Dates: start: 20180514, end: 20180523
  97. ACETAMINOPHEN W/HYDROCODONE [Concomitant]
     Active Substance: ACETAMINOPHEN\HYDROCODONE
     Indication: WRIST FRACTURE
     Dosage: 1 DF (5 MG, 325 MG), Q4H
     Route: 065
     Dates: start: 20170503, end: 20170509
  98. VITAMIN D3 [Concomitant]
     Active Substance: CHOLECALCIFEROL
     Dosage: 2000 IU, BID
     Route: 065
     Dates: start: 20181003
  99. PULMOZYME [Concomitant]
     Active Substance: DORNASE ALFA
     Indication: CYSTIC FIBROSIS LUNG
     Dosage: 1 MG/ML UNIT
     Route: 055
  100. VENTOLIN [Concomitant]
     Active Substance: ALBUTEROL SULFATE
     Indication: DYSPNOEA
     Dosage: 108 MICROGRAM HFA INHALE 2 PUFFS EVERY 46BHOURS, ORN
     Route: 055
     Dates: start: 19910425
  101. FLONASE [Concomitant]
     Active Substance: FLUTICASONE PROPIONATE
     Indication: RHINITIS ALLERGIC
     Dosage: 50 UG, 2 SPRAYS EACH NOSTRIL
     Route: 065
     Dates: start: 20150409, end: 20171214
  102. SODIUM CHLORIDE. [Concomitant]
     Active Substance: SODIUM CHLORIDE
     Indication: FLUID REPLACEMENT
     Dosage: 2-20 MLS, PRN
     Route: 042
     Dates: start: 20190809, end: 20190822

REACTIONS (5)
  - Nausea [Not Recovered/Not Resolved]
  - Vomiting [Not Recovered/Not Resolved]
  - Infective pulmonary exacerbation of cystic fibrosis [Unknown]
  - Abdominal pain [Not Recovered/Not Resolved]
  - Pneumonia [Unknown]

NARRATIVE: CASE EVENT DATE: 20191014
